FAERS Safety Report 18956747 (Version 1)
Quarter: 2021Q1

REPORT INFORMATION
  Report Type: Report from Study
  Country: US (occurrence: US)
  Receive Date: 20210301
  Receipt Date: 20210301
  Transmission Date: 20210420
  Serious: Yes (Life-Threatening, Hospitalization, Other)
  Sender: FDA-Public Use
  Company Number: US-BRISTOL-MYERS SQUIBB COMPANY-BMS-2021-017617

PATIENT
  Age: 1 Month
  Sex: Female

DRUGS (4)
  1. DASATINIB. [Suspect]
     Active Substance: DASATINIB
     Indication: INFANTILE FIBROMATOSIS
     Dosage: 16 MILLIGRAM, QD
     Route: 048
     Dates: start: 20210114, end: 20210225
  2. ELECARE FOR INFANTS [Concomitant]
     Indication: PRODUCT USED FOR UNKNOWN INDICATION
     Dosage: 24KCAI/OZ
     Route: 065
  3. SODIUM CHLORIDE. [Concomitant]
     Active Substance: SODIUM CHLORIDE
     Indication: PRODUCT USED FOR UNKNOWN INDICATION
     Route: 065
  4. MULTIVITAMINS [VITAMINS NOS] [Concomitant]
     Active Substance: VITAMINS
     Indication: PRODUCT USED FOR UNKNOWN INDICATION
     Dosage: UNK
     Route: 065

REACTIONS (13)
  - Aspartate aminotransferase increased [Recovered/Resolved]
  - Oedema genital [Recovered/Resolved]
  - Eyelid oedema [Recovered/Resolved]
  - Pulmonary oedema [Not Recovered/Not Resolved]
  - Failure to thrive [Unknown]
  - Gastrooesophageal reflux disease [Not Recovered/Not Resolved]
  - Hypersomnia [Recovered/Resolved]
  - Periorbital oedema [Not Recovered/Not Resolved]
  - Feeding disorder [Unknown]
  - Anaemia [Not Recovered/Not Resolved]
  - Hypertension [Not Recovered/Not Resolved]
  - Pleural effusion [Not Recovered/Not Resolved]
  - Intentional product use issue [Unknown]

NARRATIVE: CASE EVENT DATE: 20210118
